FAERS Safety Report 10855382 (Version 1)
Quarter: 2015Q1

REPORT INFORMATION
  Report Type: Spontaneous
  Country: DE (occurrence: FR)
  Receive Date: 20150223
  Receipt Date: 20150223
  Transmission Date: 20150721
  Serious: Yes (Hospitalization)
  Sender: FDA-Public Use
  Company Number: FR-MERZ NORTH AMERICA, INC.-15MRZ-00083

PATIENT
  Age: 63 Year
  Sex: Female

DRUGS (1)
  1. AETHOXYSKLEROL [Suspect]
     Active Substance: POLIDOCANOL
     Indication: VARICOSE VEIN
     Dosage: DOSE UNKNOWN
     Route: 042
     Dates: start: 20141230, end: 20141230

REACTIONS (1)
  - Amnestic disorder [None]

NARRATIVE: CASE EVENT DATE: 20150103
